FAERS Safety Report 17440244 (Version 2)
Quarter: 2020Q1

REPORT INFORMATION
  Report Type: Spontaneous
  Country: US (occurrence: US)
  Receive Date: 20200220
  Receipt Date: 20200228
  Transmission Date: 20200409
  Serious: No
  Sender: FDA-Public Use
  Company Number: US-PFIZER INC-2019370789

PATIENT
  Age: 90 Year

DRUGS (1)
  1. ARTHROTEC [Suspect]
     Active Substance: DICLOFENAC SODIUM\MISOPROSTOL
     Dosage: 1 DF, 1X/DAY [DICLOFENAC SODIUM: 50 MG]/[MISOPROSTOL: 0.2MG]
     Route: 048

REACTIONS (2)
  - Arthritis [Unknown]
  - Hypoaesthesia [Unknown]
